FAERS Safety Report 9916636 (Version 1)
Quarter: 2014Q1

REPORT INFORMATION
  Report Type: Spontaneous
  Country: GB (occurrence: None)
  Receive Date: 20140219
  Receipt Date: 20140219
  Transmission Date: 20141002
  Serious: Yes (Other)
  Sender: FDA-Public Use
  Company Number: AUR-APL-2014-01549

PATIENT
  Age: 51 Year
  Sex: Female
  Weight: 98 kg

DRUGS (2)
  1. AMLODIPINE (AMLODIPINE) [Suspect]
     Indication: HYPERTENSION
     Dosage: (5 MG), ORAL
     Route: 048
     Dates: start: 201311, end: 201312
  2. LANSOPRAZOLE (LANSOPRAZOLE) [Suspect]
     Indication: PRODUCT USED FOR UNKNOWN INDICATION

REACTIONS (7)
  - Inhibitory drug interaction [None]
  - Back pain [None]
  - Pain [None]
  - Palpitations [None]
  - Hiatus hernia [None]
  - Drug ineffective [None]
  - Condition aggravated [None]
